FAERS Safety Report 9583672 (Version 1)
Quarter: 2013Q4

REPORT INFORMATION
  Report Type: Spontaneous
  Country: US (occurrence: US)
  Receive Date: 20131002
  Receipt Date: 20131002
  Transmission Date: 20140711
  Serious: No
  Sender: FDA-Public Use
  Company Number: US-AMGEN-USASP2013048359

PATIENT
  Age: 52 Year
  Sex: Female
  Weight: 60.32 kg

DRUGS (14)
  1. ENBREL [Suspect]
     Indication: PRODUCT USED FOR UNKNOWN INDICATION
     Dosage: 50 MG, QWK
     Route: 058
  2. CYMBALTA [Concomitant]
     Dosage: 60 MG, UNK
  3. ULTRAM                             /00599202/ [Concomitant]
     Dosage: 50 MG, UNK
  4. METHOTREXATE [Concomitant]
     Dosage: 2.5 MG, UNK
  5. PREDNISONE [Concomitant]
     Dosage: 2.5 MG, UNK
  6. PATANASE [Concomitant]
     Dosage: 0.6 % SPRAY, UNK
  7. ZYRTEC [Concomitant]
     Dosage: 5 MG, UNK
  8. FLONASE [Concomitant]
     Dosage: 0.05 % SPRAY, UNK
  9. MOBIC [Concomitant]
     Dosage: 7.5 MG, UNK
  10. FISH OIL [Concomitant]
     Dosage: UNK
  11. CALCIUM [Concomitant]
     Dosage: 500 UNK, UNK
  12. OSTEO-BI-FLEX [Concomitant]
     Dosage: UNK
  13. FOLIC ACID [Concomitant]
     Dosage: UNK
  14. VITAMIN D3 [Concomitant]
     Dosage: 10000 UNIT, UNK

REACTIONS (4)
  - Headache [Unknown]
  - Local swelling [Recovering/Resolving]
  - Malaise [Unknown]
  - Injection site erythema [Unknown]
